FAERS Safety Report 8567128-6 (Version None)
Quarter: 2012Q3

REPORT INFORMATION
  Report Type: 
  Country: None (occurrence: None)
  Receive Date: 20120803
  Receipt Date: 20110909
  Transmission Date: 20120928
  Serious: No
  Sender: FDA-Public Use
  Company Number: US-ABBOTT-11P-163-0853269-00

PATIENT
  Sex: Female
  Weight: 62.652 kg

DRUGS (7)
  1. LIPITOR [Concomitant]
     Indication: PRODUCT USED FOR UNKNOWN INDICATION
  2. FISH OIL [Concomitant]
     Indication: PRODUCT USED FOR UNKNOWN INDICATION
  3. NIASPAN [Suspect]
     Dosage: 1000 MG
  4. CALCIUM [Concomitant]
     Indication: PRODUCT USED FOR UNKNOWN INDICATION
  5. VITAMIN D [Concomitant]
     Indication: PRODUCT USED FOR UNKNOWN INDICATION
  6. NIASPAN [Suspect]
     Indication: PRODUCT USED FOR UNKNOWN INDICATION
     Dates: start: 20110801
  7. ASPIRIN [Concomitant]
     Indication: PRODUCT USED FOR UNKNOWN INDICATION

REACTIONS (5)
  - RASH [None]
  - BURNING SENSATION [None]
  - FLUSHING [None]
  - RASH MACULAR [None]
  - PRURITUS [None]
